FAERS Safety Report 11738243 (Version 1)
Quarter: 2015Q4

REPORT INFORMATION
  Report Type: Spontaneous
  Country: FR (occurrence: FR)
  Receive Date: 20151113
  Receipt Date: 20151113
  Transmission Date: 20160304
  Serious: Yes (Hospitalization)
  Sender: FDA-Public Use
  Company Number: FR-PFIZER INC-2015378007

PATIENT
  Age: 80 Year
  Sex: Female
  Weight: 60 kg

DRUGS (10)
  1. CANDESARTAN [Concomitant]
     Active Substance: CANDESARTAN
     Indication: HYPERTENSION
     Dosage: UNK
  2. OMEPRAZOLE. [Interacting]
     Active Substance: OMEPRAZOLE
     Dosage: 20 MG, DAILY
  3. MELPHALAN [Concomitant]
     Active Substance: MELPHALAN
     Indication: PLASMA CELL MYELOMA
     Dosage: 9 MG/M2 (16 MG) FROM DAY 1 TO 4,
     Dates: start: 20140401
  4. VALACICLOVIR [Concomitant]
     Active Substance: VALACYCLOVIR HYDROCHLORIDE
     Dosage: 500 MG, DAILY
  5. ATORVASTATIN CALCIUM. [Suspect]
     Active Substance: ATORVASTATIN CALCIUM
     Indication: HYPERCHOLESTEROLAEMIA
     Dosage: UNK
  6. SULFAMETHOXAZOLE AND TRIMETHOPRIM [Concomitant]
     Active Substance: SULFAMETHOXAZOLE\TRIMETHOPRIM
     Indication: PNEUMOCYSTIS JIROVECII PNEUMONIA
     Dosage: UNK (800/160 MG THREE TIMES A WEEK)
  7. PREDNISONE. [Concomitant]
     Active Substance: PREDNISONE
     Indication: PLASMA CELL MYELOMA
     Dosage: 60 MG/M2, UNK
     Dates: start: 20140401
  8. SOTALOL. [Concomitant]
     Active Substance: SOTALOL
     Indication: HYPERTENSION
     Dosage: UNK
  9. CALCIUM FOLINATE [Concomitant]
     Active Substance: LEUCOVORIN CALCIUM
     Dosage: 25 MG, WEEKLY
  10. BORTEZOMIB [Concomitant]
     Active Substance: BORTEZOMIB
     Indication: PLASMA CELL MYELOMA
     Dosage: 1.3 MG/M2 (DAY 1, 4, 8, 11, 22, 25, 29, 32), UNK
     Route: 058
     Dates: start: 20140401

REACTIONS (2)
  - Muscular weakness [Unknown]
  - Drug interaction [Unknown]
